FAERS Safety Report 9119502 (Version 1)
Quarter: 2013Q1

REPORT INFORMATION
  Report Type: Spontaneous
  Country: US (occurrence: US)
  Receive Date: 20130207
  Receipt Date: 20130207
  Transmission Date: 20140127
  Serious: Yes (Other)
  Sender: FDA-Public Use
  Company Number: US-009507513-1301USA000992

PATIENT
  Age: 3 Year
  Sex: Male

DRUGS (2)
  1. AZASITE [Suspect]
     Indication: CONJUNCTIVITIS BACTERIAL
     Dosage: 1 GTT, BID
     Dates: start: 20080628
  2. AZASITE [Suspect]
     Dosage: 1 GTT, QD
     Route: 047
     Dates: start: 20080730, end: 20080804

REACTIONS (4)
  - Hypersensitivity [Unknown]
  - Pruritus [Unknown]
  - Periorbital oedema [Unknown]
  - Ocular hyperaemia [Unknown]
